FAERS Safety Report 4348056-9 (Version None)
Quarter: 2004Q2

REPORT INFORMATION
  Report Type: 
  Country: None (occurrence: None)
  Receive Date: 20040422
  Receipt Date: 20040412
  Transmission Date: 20050107
  Serious: Yes (Death, Hospitalization, Other)
  Sender: FDA-Public Use
  Company Number: PHHO2004US05551

PATIENT
  Age: 62 Year
  Sex: Male
  Weight: 73.1 kg

DRUGS (9)
  1. CGP 571148B (STI571/CGP57148B T35717+CAPS) CAPSULE [Suspect]
     Indication: SMALL CELL LUNG CANCER STAGE UNSPECIFIED
     Dosage: 300 MG, QD, ORAL
     Route: 048
     Dates: start: 20030826, end: 20040112
  2. CISPLATIN [Concomitant]
  3. IRINOTECAN (IRINOTECAN) [Concomitant]
  4. OXYCONTIN [Concomitant]
  5. LOVENOX [Concomitant]
  6. VIOXX [Concomitant]
  7. PROTONIX [Concomitant]
  8. CALCIUM [Concomitant]
  9. MAGNESIUM [Concomitant]

REACTIONS (27)
  - ATRIAL FIBRILLATION [None]
  - CARDIAC FAILURE [None]
  - CATHETER SITE INFECTION [None]
  - DRUG EFFECT DECREASED [None]
  - ENTEROCOCCAL INFECTION [None]
  - GENERAL PHYSICAL HEALTH DETERIORATION [None]
  - HAEMATOCRIT DECREASED [None]
  - HAEMOGLOBIN DECREASED [None]
  - HAEMORRHAGE [None]
  - HYPOVOLAEMIA [None]
  - KLEBSIELLA INFECTION [None]
  - MARKEDLY REDUCED DIETARY INTAKE [None]
  - MASS [None]
  - NOSOCOMIAL INFECTION [None]
  - PANCREATITIS [None]
  - PLATELET COUNT DECREASED [None]
  - PLEURAL EFFUSION [None]
  - PNEUMONIA [None]
  - PSEUDOCYST [None]
  - PSEUDOMONAS INFECTION [None]
  - PYOTHORAX [None]
  - RENAL FAILURE [None]
  - RESPIRATORY FAILURE [None]
  - SEPSIS [None]
  - SINUS TACHYCARDIA [None]
  - SKIN ULCER [None]
  - STAPHYLOCOCCAL INFECTION [None]
